FAERS Safety Report 11813467 (Version 1)
Quarter: 2015Q4

REPORT INFORMATION
  Report Type: Spontaneous
  Country: US (occurrence: None)
  Receive Date: 20151208
  Receipt Date: 20151208
  Transmission Date: 20160305
  Serious: Yes (Hospitalization)
  Sender: FDA-Public Use
  Company Number: None

PATIENT
  Age: 46 Year
  Sex: Female
  Weight: 183.6 kg

DRUGS (18)
  1. K-DUR [Concomitant]
     Active Substance: POTASSIUM CHLORIDE
  2. PROTONIX [Concomitant]
     Active Substance: PANTOPRAZOLE SODIUM
  3. MSIR [Concomitant]
     Active Substance: MORPHINE SULFATE
  4. DOBUTAMINE [Concomitant]
     Active Substance: DOBUTAMINE\DOBUTAMINE HYDROCHLORIDE
  5. HYDROMORPHONE [Suspect]
     Active Substance: HYDROMORPHONE
     Indication: PAIN
     Dosage: Q4H
     Route: 042
  6. BUMEX [Concomitant]
     Active Substance: BUMETANIDE
  7. COREG [Concomitant]
     Active Substance: CARVEDILOL
  8. SYNTHROID [Concomitant]
     Active Substance: LEVOTHYROXINE SODIUM
  9. ALDACTONE [Concomitant]
     Active Substance: SPIRONOLACTONE
  10. ZOCOR [Concomitant]
     Active Substance: SIMVASTATIN
  11. DESYRAL [Concomitant]
  12. MAG OS [Concomitant]
  13. ADVAIR HFA [Concomitant]
     Active Substance: FLUTICASONE PROPIONATE\SALMETEROL XINAFOATE
  14. COUMADIN [Concomitant]
     Active Substance: WARFARIN SODIUM
  15. OPAN ER [Concomitant]
  16. ALBUTEROL. [Concomitant]
     Active Substance: ALBUTEROL
  17. HUMULIN NOS [Concomitant]
     Active Substance: INSULIN HUMAN
  18. NYSTATIN. [Concomitant]
     Active Substance: NYSTATIN

REACTIONS (3)
  - Mental status changes [None]
  - Bronchitis [None]
  - Cardiac failure [None]

NARRATIVE: CASE EVENT DATE: 20150101
